FAERS Safety Report 18973806 (Version 1)
Quarter: 2021Q1

REPORT INFORMATION
  Report Type: Report from Study
  Country: GB (occurrence: GB)
  Receive Date: 20210305
  Receipt Date: 20210305
  Transmission Date: 20210420
  Serious: Yes (Other)
  Sender: FDA-Public Use
  Company Number: GB-ASPEN-GLO2021GB001094

PATIENT

DRUGS (3)
  1. DEXAMETHASONE. [Suspect]
     Active Substance: DEXAMETHASONE
     Indication: PLASMA CELL MYELOMA
     Dosage: 4 MG
     Route: 065
     Dates: start: 20170525
  2. IXAZOMIB [Suspect]
     Active Substance: IXAZOMIB
     Indication: PLASMA CELL MYELOMA
     Dosage: 4 MG
     Route: 048
     Dates: start: 20170525
  3. LENALIDOMIDE [Suspect]
     Active Substance: LENALIDOMIDE
     Indication: PLASMA CELL MYELOMA
     Dosage: 25 MG
     Route: 065
     Dates: start: 20170525

REACTIONS (6)
  - Lower respiratory tract infection [Unknown]
  - Light chain analysis increased [Not Recovered/Not Resolved]
  - Feeling abnormal [Not Recovered/Not Resolved]
  - Pyrexia [Unknown]
  - Vertebral lesion [Not Recovered/Not Resolved]
  - Malaise [Unknown]
